FAERS Safety Report 9256438 (Version 2)
Quarter: 2013Q2

REPORT INFORMATION
  Report Type: Spontaneous
  Country: CA (occurrence: CA)
  Receive Date: 20130426
  Receipt Date: 20130513
  Transmission Date: 20140414
  Serious: Yes (Hospitalization)
  Sender: FDA-Public Use
  Company Number: CA-AMGEN-CANSP2013028436

PATIENT
  Age: 65 Year
  Sex: Male
  Weight: 88.6 kg

DRUGS (3)
  1. NEULASTA [Suspect]
     Indication: FEBRILE NEUTROPENIA
     Dosage: 10MG/1.0ML, UNK
     Dates: start: 20130404, end: 20130404
  2. NEUPOGEN [Suspect]
     Indication: PRODUCT USED FOR UNKNOWN INDICATION
     Dosage: 3 CC DAILY
     Route: 058
     Dates: start: 20130207
  3. CHEMOTHERAPEUTICS [Concomitant]
     Dosage: UNK, Q2WK

REACTIONS (1)
  - Febrile neutropenia [Recovered/Resolved]
